FAERS Safety Report 21350148 (Version 3)
Quarter: 2022Q4

REPORT INFORMATION
  Report Type: Spontaneous
  Country: US (occurrence: US)
  Receive Date: 20220919
  Receipt Date: 20221014
  Transmission Date: 20230113
  Serious: No
  Sender: FDA-Public Use
  Company Number: US-PFIZER INC-202201167419

PATIENT
  Age: 27 Year
  Sex: Female
  Weight: 90.703 kg

DRUGS (2)
  1. PAXLOVID [Suspect]
     Active Substance: NIRMATRELVIR\RITONAVIR
     Indication: COVID-19 treatment
     Dosage: UNK
     Dates: start: 20220904, end: 20220908
  2. WALGREENS WAL-SOM NIGHTTIME SLEEP AID [Concomitant]
     Dosage: UNK
     Dates: start: 20220804, end: 20220916

REACTIONS (2)
  - Dysgeusia [Unknown]
  - Menstruation delayed [Unknown]

NARRATIVE: CASE EVENT DATE: 20220914
